FAERS Safety Report 4785864-4 (Version None)
Quarter: 2005Q3

REPORT INFORMATION
  Report Type: 
  Country: None (occurrence: None)
  Receive Date: 20050930
  Receipt Date: 20050406
  Transmission Date: 20060218
  Serious: Yes (Life-Threatening)
  Sender: FDA-Public Use
  Company Number: 2005FR-00308

PATIENT
  Sex: Male

DRUGS (6)
  1. FLUOXETINE [Suspect]
     Indication: DEPRESSION
     Dosage: 20 MG ORAL
     Route: 048
     Dates: start: 19980929, end: 20011204
  2. CITALOPRAM [Suspect]
     Indication: DEPRESSION
     Dosage: 20 MG ORAL
     Route: 048
     Dates: start: 20020204, end: 20050214
  3. DICLOFENAC [Concomitant]
  4. FENOFIBRATE [Concomitant]
  5. ATORVASTATIN [Concomitant]
  6. GABAPENTIN [Concomitant]

REACTIONS (1)
  - PULMONARY FIBROSIS [None]
